FAERS Safety Report 18911228 (Version 1)
Quarter: 2021Q1

REPORT INFORMATION
  Report Type: Spontaneous
  Country: CA (occurrence: CA)
  Receive Date: 20210218
  Receipt Date: 20210218
  Transmission Date: 20210420
  Serious: Yes (Other)
  Sender: FDA-Public Use
  Company Number: NVSC2021CA037100

PATIENT
  Age: 62 Year
  Sex: Female

DRUGS (14)
  1. METHADONE [Suspect]
     Active Substance: METHADONE HYDROCHLORIDE
     Indication: PRODUCT USED FOR UNKNOWN INDICATION
     Dosage: 3 DF (10 MG), QD (3 EVERY 1 DAY)
     Route: 048
  2. LYRICA [Suspect]
     Active Substance: PREGABALIN
     Indication: PRODUCT USED FOR UNKNOWN INDICATION
     Dosage: 2 DF (150 MG), QD (2 EVERY 1 DAY)
     Route: 048
  3. COSENTYX [Suspect]
     Active Substance: SECUKINUMAB
     Indication: PRODUCT USED FOR UNKNOWN INDICATION
     Dosage: 300 MG, QMO (1 EVERY 1 MONTH)
     Route: 058
  4. ERELZI [Suspect]
     Active Substance: ETANERCEPT-SZZS
     Indication: PRODUCT USED FOR UNKNOWN INDICATION
     Dosage: 17.5 MG, QW (1 EVERY 1 WEEK)
     Route: 058
  5. HUMIRA [Suspect]
     Active Substance: ADALIMUMAB
     Indication: PSORIATIC ARTHROPATHY
     Dosage: 2 DF (40 MG), QMO (2 EVERY 1 MONTH) (SOLUTION)
     Route: 058
  6. METHOTREXATE. [Suspect]
     Active Substance: METHOTREXATE
     Indication: PRODUCT USED FOR UNKNOWN INDICATION
     Dosage: 15 MG, QW (1 EVERY 1 WEEK)
     Route: 065
  7. ARAVA [Suspect]
     Active Substance: LEFLUNOMIDE
     Indication: PRODUCT USED FOR UNKNOWN INDICATION
     Dosage: 20 MG, QD (1 EVERY 1 DAY)
     Route: 048
  8. INFLIXIMAB [Suspect]
     Active Substance: INFLIXIMAB
     Indication: PRODUCT USED FOR UNKNOWN INDICATION
     Dosage: 400 MG
     Route: 042
  9. GOLIMUMAB [Suspect]
     Active Substance: GOLIMUMAB
     Indication: PRODUCT USED FOR UNKNOWN INDICATION
     Dosage: 50 MG, QW (1 EVERY 1 WEEK)
     Route: 058
  10. SULFASALAZINE. [Suspect]
     Active Substance: SULFASALAZINE
     Indication: PRODUCT USED FOR UNKNOWN INDICATION
     Dosage: 2 DF (1 G), QD
     Route: 048
  11. ERELZI [Suspect]
     Active Substance: ETANERCEPT-SZZS
     Dosage: 50 MG, QW (1 EVERY 1 WEEK)
     Route: 058
  12. PREDNISONE. [Suspect]
     Active Substance: PREDNISONE
     Indication: PRODUCT USED FOR UNKNOWN INDICATION
     Dosage: 10 MG
     Route: 065
  13. CYMBALTA [Suspect]
     Active Substance: DULOXETINE HYDROCHLORIDE
     Indication: PRODUCT USED FOR UNKNOWN INDICATION
     Dosage: 60 MG, QD (1 EVERY 1 DAY)
     Route: 048
  14. OTEZLA [Suspect]
     Active Substance: APREMILAST
     Indication: PRODUCT USED FOR UNKNOWN INDICATION
     Dosage: 2 DF (30 MG), QD (2 EVERY 1 DAY)
     Route: 048

REACTIONS (16)
  - Wheezing [Unknown]
  - Drug ineffective [Unknown]
  - Dyspnoea [Unknown]
  - Affective disorder [Unknown]
  - Decreased appetite [Unknown]
  - Emotional distress [Unknown]
  - Mood swings [Unknown]
  - Nausea [Unknown]
  - Crying [Unknown]
  - Musculoskeletal stiffness [Unknown]
  - Arthralgia [Unknown]
  - Suicidal ideation [Unknown]
  - Diarrhoea [Unknown]
  - Condition aggravated [Unknown]
  - Joint swelling [Unknown]
  - Headache [Unknown]
